FAERS Safety Report 19742285 (Version 2)
Quarter: 2021Q4

REPORT INFORMATION
  Report Type: Spontaneous
  Country: GB (occurrence: GB)
  Receive Date: 20210825
  Receipt Date: 20211027
  Transmission Date: 20220303
  Serious: Yes (Other)
  Sender: FDA-Public Use
  Company Number: None

PATIENT
  Age: 53 Year
  Sex: Female
  Weight: 50.8 kg

DRUGS (1)
  1. TERBINAFINE [Suspect]
     Active Substance: TERBINAFINE
     Indication: Product used for unknown indication
     Dosage: 250 MG
     Route: 048
     Dates: start: 20210628, end: 20210814

REACTIONS (2)
  - Ageusia [Not Recovered/Not Resolved]
  - Dysgeusia [Not Recovered/Not Resolved]

NARRATIVE: CASE EVENT DATE: 20210804
